FAERS Safety Report 4370128-3 (Version None)
Quarter: 2004Q2

REPORT INFORMATION
  Report Type: 
  Country: None (occurrence: None)
  Receive Date: 20040527
  Receipt Date: 20040521
  Transmission Date: 20050107
  Serious: Yes (Hospitalization)
  Sender: FDA-Public Use
  Company Number: 200411740GDS

PATIENT
  Age: 70 Year
  Sex: Male

DRUGS (11)
  1. ASPIRIN [Suspect]
     Indication: PROPHYLAXIS
     Dosage: 100 MG, TOTAL DAILY; ORAL
     Route: 048
  2. MELOXICAM [Suspect]
     Indication: PAIN
     Dosage: 7.5 MG, TOTAL DAILY; ORAL
     Route: 048
     Dates: start: 20040322, end: 20040508
  3. ENALAPRIL [Suspect]
     Indication: DRUG USE FOR UNKNOWN INDICATION
     Dosage: 20 MG, TOTAL DAILY; ORAL
     Route: 048
     Dates: end: 20040508
  4. UROXATRAL [Concomitant]
  5. ATORVASTATIN CALCIUM [Concomitant]
  6. ACETAMINOPHEN [Concomitant]
  7. GABAPENTIN [Concomitant]
  8. NATEGLINIDE [Concomitant]
  9. SERTRALINE HCL [Concomitant]
  10. AMLODIPINE [Concomitant]
  11. METFORMIN [Concomitant]

REACTIONS (2)
  - HYPERKALAEMIA [None]
  - RENAL FAILURE ACUTE [None]
